FAERS Safety Report 8273242-5 (Version None)
Quarter: 2012Q2

REPORT INFORMATION
  Report Type: 
  Country: None (occurrence: None)
  Receive Date: 20120411
  Receipt Date: 20120330
  Transmission Date: 20120825
  Serious: Yes (Other)
  Sender: FDA-Public Use
  Company Number: JP-PFIZER INC-2012085308

PATIENT
  Age: 10 Year
  Sex: Male

DRUGS (2)
  1. EPINASTINE HYDROCHLORIDE [Concomitant]
     Route: 065
  2. BANAN [Suspect]
     Dosage: UNKNOWN
     Route: 048

REACTIONS (3)
  - PRURITUS [None]
  - ERYTHEMA [None]
  - ORAL MUCOSAL ERYTHEMA [None]
